FAERS Safety Report 9665903 (Version 3)
Quarter: 2013Q4

REPORT INFORMATION
  Report Type: Report from Study
  Country: US (occurrence: US)
  Receive Date: 20131104
  Receipt Date: 20131106
  Transmission Date: 20140711
  Serious: Yes (Death, Hospitalization, Other)
  Sender: FDA-Public Use
  Company Number: US-SA-CLOF-1002764

PATIENT
  Age: 73 Year
  Sex: Female
  Weight: 58.1 kg

DRUGS (51)
  1. CLOFARABINE [Suspect]
     Indication: ACUTE MYELOID LEUKAEMIA
     Dosage: 49.2 MG, QD, 3 DOSES
     Route: 042
     Dates: start: 20130707, end: 20130709
  2. ENOXAPARIN [Concomitant]
     Indication: THROMBOSIS PROPHYLAXIS
     Dosage: DAILY 1800
     Route: 058
     Dates: start: 20130704, end: 20130708
  3. ACETAMINOPHEN [Concomitant]
     Indication: PAIN
     Dosage: 650 MG ORAL EVERY 8 HOUR PRN?T}100.5
     Route: 048
     Dates: start: 20130705, end: 20130810
  4. BECLOMETASONE [Concomitant]
     Indication: SEASONAL ALLERGY
     Dosage: 42 MCG/SPRAY, 2 SPRAYS BOTH NOSTRILS EVERY 12 HOURS
     Route: 045
     Dates: start: 20130704, end: 20130810
  5. DEXAMETHASONE [Concomitant]
     Indication: PREMEDICATION
     Route: 042
     Dates: start: 20130706, end: 20130712
  6. DEXTROSE [Concomitant]
     Indication: HYPOGLYCAEMIA
     Route: 048
     Dates: start: 20130709, end: 20130710
  7. DEXTROSE [Concomitant]
     Indication: HYPOGLYCAEMIA
     Route: 048
     Dates: start: 20130709, end: 20130710
  8. DEXTROSE [Concomitant]
     Indication: HYPOGLYCAEMIA
     Dosage: DEXTROSE 50 % PREFILLED SYRINGE; 25 ML IV PUSH EVERY 4 HOURS
     Route: 042
     Dates: start: 20130709, end: 20130710
  9. DEXTROSE [Concomitant]
     Indication: HYPOGLYCAEMIA
     Dosage: DEXTROSE 50 % PREFILLED SYRINGE; 50 ML IV PUSH EVERY 4 HOURS
     Route: 042
     Dates: start: 20130709, end: 20130710
  10. DOCUSATE [Concomitant]
     Indication: CONSTIPATION
     Route: 048
     Dates: start: 20130705, end: 20130810
  11. FUROSEMIDE [Concomitant]
     Indication: OEDEMA
     Route: 042
     Dates: start: 20130706, end: 20130808
  12. GLYCERIN [Concomitant]
     Indication: MUCOSAL INFLAMMATION
     Dosage: 5 ML; SWISH AND SPIT; EVERY 4 HOURS
     Dates: start: 20130713, end: 20130810
  13. GLYCERIN [Concomitant]
     Indication: PAIN
     Dosage: 5 ML; SWISH AND SPIT; EVERY 4 HOURS
     Dates: start: 20130713, end: 20130810
  14. GUAIFENESIN [Concomitant]
     Indication: COUGH
     Route: 048
     Dates: start: 20130704, end: 20130730
  15. GUAIFENESIN [Concomitant]
     Indication: COUGH
     Dosage: 100 MG/ 5M
     Dates: start: 20130705, end: 20130810
  16. HYDROCHLOROTHIAZIDE [Concomitant]
     Indication: HYPERTENSION
     Route: 048
     Dates: start: 20130712, end: 20130712
  17. HYDROCHLOROTHIAZIDE [Concomitant]
     Indication: OEDEMA
     Route: 048
     Dates: start: 20130712, end: 20130712
  18. LABETALOL [Concomitant]
     Indication: HYPERTENSION
     Dates: start: 20130713, end: 20130713
  19. LEVOFLOXACIN [Concomitant]
     Indication: ANTIBIOTIC PROPHYLAXIS
     Route: 042
     Dates: start: 20130707, end: 20130714
  20. LEVOFLOXACIN [Concomitant]
     Indication: ANTIBIOTIC PROPHYLAXIS
     Route: 042
     Dates: start: 20130706, end: 20130706
  21. LEVOFLOXACIN [Concomitant]
     Indication: ANTIBIOTIC PROPHYLAXIS
     Route: 042
     Dates: start: 20130716, end: 20130716
  22. LIDOCAINE [Concomitant]
     Indication: MUCOSAL INFLAMMATION
     Dosage: LIDOCAINE VISCOUS; 15 ML SWISH AND SPIT
     Dates: start: 20130713, end: 20130810
  23. LISINOPRIL [Concomitant]
     Indication: HYPERTENSION
     Route: 048
     Dates: start: 20130713, end: 20130713
  24. LORATADINE [Concomitant]
     Indication: SEASONAL ALLERGY
     Dosage: DAILY AT BEDTIME
     Route: 048
     Dates: start: 20130704, end: 20130806
  25. LORAZEPAM [Concomitant]
     Indication: ANXIETY
     Route: 048
     Dates: start: 20130705, end: 20130705
  26. LORAZEPAM [Concomitant]
     Indication: ANXIETY
     Route: 048
     Dates: start: 20130707, end: 20130715
  27. ALL OTHER THERAPEUTIC PRODUCTS [Concomitant]
     Indication: MUCOSAL INFLAMMATION
     Dosage: MAGIC MOUT WASH SUSPENSION-SOLUTION; 10 ML SWISH AND SPIT EVERY 4 HOURS
     Dates: start: 20130712, end: 20130810
  28. MAGNESIUM OXIDE [Concomitant]
     Indication: ELECTROLYTE SUBSTITUTION THERAPY
     Route: 048
     Dates: start: 20130705, end: 20130705
  29. MAGNESIUM SULFATE [Concomitant]
     Indication: ELECTROLYTE SUBSTITUTION THERAPY
     Route: 042
     Dates: start: 20130705, end: 20130705
  30. MAGNESIUM SULFATE [Concomitant]
     Indication: ELECTROLYTE SUBSTITUTION THERAPY
     Route: 042
     Dates: start: 20130714, end: 20130714
  31. MAGNESIUM SULFATE [Concomitant]
     Indication: ELECTROLYTE SUBSTITUTION THERAPY
     Route: 042
     Dates: start: 20130707, end: 20130707
  32. MAGNESIUM SULFATE [Concomitant]
     Indication: ELECTROLYTE SUBSTITUTION THERAPY
     Route: 042
     Dates: start: 20130709, end: 20130709
  33. MAGNESIUM SULFATE [Concomitant]
     Indication: ELECTROLYTE SUBSTITUTION THERAPY
     Route: 042
     Dates: start: 20130712, end: 20130712
  34. METOPROLOL SUCCINATE [Concomitant]
     Indication: CARDIAC FAILURE
     Dosage: METOPROLOL SUCCINATE ER TABLET
     Route: 048
     Dates: start: 20130711, end: 20130711
  35. MORPHINE [Concomitant]
     Indication: PAIN
     Route: 042
     Dates: start: 20130716, end: 20130719
  36. ONDANSETRON [Concomitant]
     Indication: NAUSEA
     Route: 048
     Dates: start: 20130704, end: 20130810
  37. ONDANSETRON [Concomitant]
     Indication: VOMITING
     Route: 048
     Dates: start: 20130704, end: 20130810
  38. OXYCODONE [Concomitant]
     Indication: PAIN
     Route: 048
     Dates: start: 20130704, end: 20130711
  39. OXYCODONE [Concomitant]
     Indication: PAIN
     Route: 048
     Dates: start: 20130713, end: 20130714
  40. OXYCODONE [Concomitant]
     Indication: PAIN
     Route: 048
     Dates: start: 20130704, end: 20130704
  41. POLYETHYLENE GLYCOL [Concomitant]
     Indication: CONSTIPATION
     Route: 048
     Dates: start: 20130705, end: 20130730
  42. POTASSIUM CHLORIDE [Concomitant]
     Indication: HYPOKALAEMIA
     Dosage: POTASSIUM CHLORIDE IVPB
     Route: 048
     Dates: start: 20130713, end: 20130713
  43. SENNA [Concomitant]
     Indication: CONSTIPATION
     Dosage: 8.6 MG; 2 TABLETS EVERY 12 HOURS
     Route: 048
     Dates: start: 20130705, end: 20130730
  44. TOBRAMYCIN [Concomitant]
     Indication: BACTERIAL INFECTION
     Dosage: TOBRAMYCIN IVPB
     Route: 042
     Dates: start: 20130706, end: 20130706
  45. TOBRAMYCIN [Concomitant]
     Indication: BACTERIAL INFECTION
     Dosage: TOBRAMYCIN IVPB
     Route: 042
     Dates: start: 20130716, end: 20130716
  46. VALACICLOVIR [Concomitant]
     Indication: ANTIVIRAL TREATMENT
     Route: 048
     Dates: start: 20130714, end: 20130716
  47. I.V. SOLUTIONS [Concomitant]
     Indication: ELECTROLYTE IMBALANCE
     Route: 042
     Dates: start: 20130703, end: 20130703
  48. I.V. SOLUTIONS [Concomitant]
     Indication: ELECTROLYTE IMBALANCE
     Route: 042
     Dates: start: 20130706, end: 20130706
  49. I.V. SOLUTIONS [Concomitant]
     Indication: ELECTROLYTE IMBALANCE
     Route: 042
     Dates: start: 20130716, end: 20130716
  50. SODIUM CHLORIDE [Concomitant]
     Indication: FLUID REPLACEMENT
     Dosage: 100 ML/HR CONTINUOUS
     Route: 042
     Dates: start: 20130706, end: 20130713
  51. SODIUM CHLORIDE [Concomitant]
     Indication: FLUID REPLACEMENT
     Dosage: 100 ML/HR CONTINUOUS
     Route: 042
     Dates: start: 20130703, end: 20130706

REACTIONS (11)
  - Acute respiratory distress syndrome [Fatal]
  - Blood alkaline phosphatase increased [Not Recovered/Not Resolved]
  - Pneumonia bacterial [Fatal]
  - Bacterial sepsis [Not Recovered/Not Resolved]
  - Aspartate aminotransferase increased [Not Recovered/Not Resolved]
  - Alanine aminotransferase increased [Not Recovered/Not Resolved]
  - Blood bilirubin increased [Not Recovered/Not Resolved]
  - Bacterial test positive [Recovered/Resolved]
  - Myocardial infarction [Fatal]
  - Cardiac failure [Fatal]
  - Acute myeloid leukaemia recurrent [Not Recovered/Not Resolved]
